FAERS Safety Report 8933821 (Version 1)
Quarter: 2012Q4

REPORT INFORMATION
  Report Type: 
  Country: CA (occurrence: CA)
  Receive Date: 20121129
  Receipt Date: 20121129
  Transmission Date: 20130627
  Serious: Yes (Hospitalization, Other)
  Sender: FDA-Public Use
  Company Number: CA-ELI_LILLY_AND_COMPANY-CA201211006530

PATIENT
  Age: 70 Year
  Sex: Male

DRUGS (5)
  1. FORTEO [Suspect]
     Indication: OSTEOPOROSIS
     Dosage: 20 ug, qd
     Route: 058
     Dates: start: 20120305, end: 20121107
  2. VITAMIN D NOS [Concomitant]
     Dosage: UNK, unknown
     Route: 065
  3. TUMS                               /00193601/ [Concomitant]
     Dosage: UNK, unknown
     Route: 065
  4. SYMBICORT [Concomitant]
     Dosage: UNK, unknown
     Route: 065
  5. SPIRIVA [Concomitant]
     Dosage: UNK, unknown
     Route: 065

REACTIONS (1)
  - Cerebrovascular accident [Unknown]
